FAERS Safety Report 6579503-X (Version None)
Quarter: 2010Q1

REPORT INFORMATION
  Report Type: 
  Country: None (occurrence: None)
  Receive Date: 20100209
  Receipt Date: 20100209
  Transmission Date: 20100710
  Serious: Yes (Other)
  Sender: FDA-Public Use
  Company Number: None

PATIENT
  Age: 24 Year
  Sex: Female
  Weight: 68.0396 kg

DRUGS (5)
  1. SAPHRIS [Suspect]
     Indication: BIPOLAR DISORDER
  2. DEPAKOTE [Concomitant]
  3. KEPPRA [Concomitant]
  4. LAMICTAL [Concomitant]
  5. NAPROXEN [Concomitant]

REACTIONS (2)
  - DROOLING [None]
  - DYSPHAGIA [None]
